FAERS Safety Report 6404007-4 (Version None)
Quarter: 2009Q4

REPORT INFORMATION
  Report Type: 
  Country: None (occurrence: None)
  Receive Date: 20091016
  Receipt Date: 20090708
  Transmission Date: 20100525
  Serious: Yes (Hospitalization)
  Sender: FDA-Public Use
  Company Number: US-ALEXION-A200900511

PATIENT
  Sex: Male

DRUGS (2)
  1. SOLIRIS [Suspect]
     Indication: PAROXYSMAL NOCTURNAL HAEMOGLOBINURIA
     Dosage: 600 MG, QW
     Route: 042
     Dates: start: 20080508, end: 20080529
  2. SOLIRIS [Suspect]
     Dosage: 900 MG, Q2W
     Route: 042
     Dates: start: 20080605, end: 20090528

REACTIONS (5)
  - CULTURE URINE POSITIVE [None]
  - ENTEROBACTER PNEUMONIA [None]
  - HIATUS HERNIA [None]
  - PNEUMONIA STREPTOCOCCAL [None]
  - SPUTUM CULTURE POSITIVE [None]
